FAERS Safety Report 25705421 (Version 3)
Quarter: 2025Q4

REPORT INFORMATION
  Report Type: Report from Study
  Country: PE (occurrence: PE)
  Receive Date: 20250820
  Receipt Date: 20251022
  Transmission Date: 20260118
  Serious: Yes (Hospitalization, Other)
  Sender: ROCHE
  Company Number: PE-ROCHE-10000250196

PATIENT
  Age: 71 Year
  Sex: Female
  Weight: 52 kg

DRUGS (4)
  1. HERCEPTIN [Suspect]
     Active Substance: TRASTUZUMAB
     Indication: Breast cancer
     Route: 042
  2. PERJETA [Suspect]
     Active Substance: PERTUZUMAB
     Indication: Breast cancer
     Route: 042
  3. PERJETA [Suspect]
     Active Substance: PERTUZUMAB
     Dosage: FREQUENCY WAS NOT REPORTED.
     Route: 042
  4. CAPECITABINE [Suspect]
     Active Substance: CAPECITABINE
     Indication: Product used for unknown indication
     Dosage: DOSE AND FREQUENCY WERE NOT REPORTED
     Route: 065

REACTIONS (35)
  - Breast pain [Unknown]
  - Off label use [Unknown]
  - Product use issue [Unknown]
  - Aphasia [Not Recovered/Not Resolved]
  - Throat irritation [Unknown]
  - Oropharyngeal discomfort [Not Recovered/Not Resolved]
  - Oropharyngeal pain [Not Recovered/Not Resolved]
  - Thermal burn [Not Recovered/Not Resolved]
  - Tonsillar hypertrophy [Unknown]
  - Oropharyngeal pain [Unknown]
  - Peripheral swelling [Unknown]
  - Nasopharyngitis [Recovered/Resolved]
  - Headache [Unknown]
  - Hypoaesthesia [Unknown]
  - Discomfort [Unknown]
  - Weight increased [Unknown]
  - Inflammation [Unknown]
  - Emotional distress [Unknown]
  - Arthralgia [Unknown]
  - Pain in extremity [Unknown]
  - Sleep disorder [Unknown]
  - Hypertension [Unknown]
  - Breast mass [Unknown]
  - Breast cancer recurrent [Unknown]
  - Disease progression [Unknown]
  - Peripheral swelling [Recovering/Resolving]
  - Gastrointestinal infection [Recovered/Resolved]
  - Decreased appetite [Recovered/Resolved]
  - Anaemia [Unknown]
  - Axillary mass [Unknown]
  - Insomnia [Unknown]
  - Gastritis [Unknown]
  - Gastrointestinal wall thickening [Unknown]
  - Neoplasm progression [Unknown]
  - Pain in extremity [Unknown]

NARRATIVE: CASE EVENT DATE: 20250801
